FAERS Safety Report 4814031-0 (Version None)
Quarter: 2005Q4

REPORT INFORMATION
  Report Type: 
  Country: None (occurrence: None)
  Receive Date: 20051028
  Receipt Date: 20050517
  Transmission Date: 20060501
  Serious: No
  Sender: FDA-Public Use
  Company Number: US-GLAXOSMITHKLINE-A0558982A

PATIENT
  Sex: Female

DRUGS (6)
  1. SEREVENT [Suspect]
     Indication: BRONCHIECTASIS
     Dosage: 1PUFF TWICE PER DAY
     Route: 055
     Dates: start: 20050503
  2. ATENOLOL [Concomitant]
  3. TRIAMTERENE [Concomitant]
  4. HYDROCHLOROTHIAZIDE [Concomitant]
  5. ACTONEL [Concomitant]
  6. FOLIC ACID [Concomitant]

REACTIONS (2)
  - DRUG INEFFECTIVE [None]
  - THROAT IRRITATION [None]
